FAERS Safety Report 14115196 (Version 1)
Quarter: 2017Q4

REPORT INFORMATION
  Report Type: Spontaneous
  Country: AU (occurrence: AU)
  Receive Date: 20171023
  Receipt Date: 20171023
  Transmission Date: 20180321
  Serious: Yes (Hospitalization)
  Sender: FDA-Public Use
  Company Number: AU-MYLANLABS-2017M1066101

PATIENT
  Age: 77 Year
  Sex: Female

DRUGS (9)
  1. OXYCODONE [Suspect]
     Active Substance: OXYCODONE
     Dosage: DOUBLE DOSE
     Route: 048
  2. SERTRALINE [Concomitant]
     Active Substance: SERTRALINE HYDROCHLORIDE
     Indication: PRODUCT USED FOR UNKNOWN INDICATION
     Dosage: A WEANING 25 MG DAILY DOSE
     Route: 065
  3. TEMAZEPAM. [Suspect]
     Active Substance: TEMAZEPAM
     Dosage: EVERY NIGHT
     Route: 065
  4. TEMAZEPAM. [Suspect]
     Active Substance: TEMAZEPAM
     Indication: PRODUCT USED FOR UNKNOWN INDICATION
     Dosage: DOUBLE DOSE
     Route: 065
  5. DIAZEPAM. [Suspect]
     Active Substance: DIAZEPAM
     Indication: PRODUCT USED FOR UNKNOWN INDICATION
     Dosage: EVERY NIGHT AS NEEDED
     Route: 065
  6. BUPRENORPHINE. [Concomitant]
     Active Substance: BUPRENORPHINE
     Indication: PRODUCT USED FOR UNKNOWN INDICATION
     Dosage: 20 MICROGRAM/HOURS
     Route: 023
  7. OXYCODONE [Suspect]
     Active Substance: OXYCODONE
     Indication: PRODUCT USED FOR UNKNOWN INDICATION
     Dosage: 5 MG AS NEEDED
     Route: 048
  8. AMITRIPTYLINE [Concomitant]
     Active Substance: AMITRIPTYLINE
     Indication: PRODUCT USED FOR UNKNOWN INDICATION
     Dosage: 50 MG EVERY NIGHT
     Route: 065
  9. DIAZEPAM. [Suspect]
     Active Substance: DIAZEPAM
     Dosage: DOUBLE DOSE
     Route: 065

REACTIONS (16)
  - Fall [Unknown]
  - Bruxism [Recovering/Resolving]
  - Hyperacusis [Unknown]
  - Disturbance in attention [Unknown]
  - Impaired reasoning [Unknown]
  - Memory impairment [Unknown]
  - Intentional overdose [Unknown]
  - Dysarthria [Unknown]
  - Judgement impaired [Unknown]
  - Anxiety [Unknown]
  - Panic disorder [Unknown]
  - Hypersomnia [Unknown]
  - Restlessness [Unknown]
  - Paranoia [Unknown]
  - Drug abuse [Unknown]
  - Abnormal behaviour [Unknown]
